FAERS Safety Report 8005708-7 (Version None)
Quarter: 2011Q4

REPORT INFORMATION
  Report Type: 
  Country: None (occurrence: None)
  Receive Date: 20111223
  Receipt Date: 20111215
  Transmission Date: 20120403
  Serious: Yes (Hospitalization)
  Sender: FDA-Public Use
  Company Number: PHHY2011US92189

PATIENT
  Age: 13 Year
  Sex: Female

DRUGS (2)
  1. BUPROPION [Suspect]
  2. BACLOFEN [Suspect]

REACTIONS (10)
  - COMA [None]
  - ELECTROENCEPHALOGRAM [None]
  - OVERDOSE [None]
  - NO THERAPEUTIC RESPONSE [None]
  - RESPIRATORY ARREST [None]
  - POSTURE ABNORMAL [None]
  - GRAND MAL CONVULSION [None]
  - SUICIDAL IDEATION [None]
  - HYPOTHERMIA [None]
  - BRADYCARDIA [None]
